FAERS Safety Report 9306267 (Version 4)
Quarter: 2014Q1

REPORT INFORMATION
  Report Type: Spontaneous
  Country: US (occurrence: US)
  Receive Date: 20130523
  Receipt Date: 20140122
  Transmission Date: 20141002
  Serious: Yes (Other)
  Sender: FDA-Public Use
  Company Number: US-PFIZER INC-2013156489

PATIENT
  Age: 62 Year
  Sex: Female
  Weight: 68.03 kg

DRUGS (11)
  1. PREMARIN [Suspect]
     Indication: MENOPAUSAL SYMPTOMS
     Dosage: UNK, 1X/DAY
     Route: 048
     Dates: start: 1994
  2. PREMARIN [Suspect]
     Indication: OSTEOPOROSIS
  3. ATORVASTATIN [Concomitant]
     Dosage: UNK
  4. OMEPRAZOLE [Concomitant]
     Dosage: UNK
  5. ASPIRIN [Concomitant]
     Dosage: 325 MG, UNK
  6. CENTRUM SILVER [Concomitant]
     Dosage: UNK
  7. LEVOTHYROXINE [Concomitant]
     Dosage: 88 UG, UNK
  8. LISINOPRIL W/HYDROCHLOROTHIAZIDE [Concomitant]
     Indication: BLOOD PRESSURE INCREASED
     Dosage: 40/25 MG, 1X/DAY
  9. METOPROLOL [Concomitant]
     Indication: BLOOD PRESSURE INCREASED
     Dosage: 50 MG, UNK
  10. XANAX [Concomitant]
     Dosage: UNK, 2X/DAY
  11. NITROSTAT [Concomitant]
     Indication: CHEST PAIN
     Dosage: UNK

REACTIONS (13)
  - Aneurysm [Not Recovered/Not Resolved]
  - Neoplasm malignant [Unknown]
  - Hypothyroidism [Unknown]
  - Blood parathyroid hormone decreased [Unknown]
  - Arthropathy [Unknown]
  - Lacrimation decreased [Unknown]
  - Herpes zoster [Unknown]
  - Weight increased [Unknown]
  - Feeling abnormal [Unknown]
  - Bone pain [Unknown]
  - Hearing impaired [Unknown]
  - Visual impairment [Unknown]
  - Stress [Unknown]
